FAERS Safety Report 14680850 (Version 4)
Quarter: 2018Q3

REPORT INFORMATION
  Report Type: Spontaneous
  Country: US (occurrence: US)
  Receive Date: 20180326
  Receipt Date: 20180828
  Transmission Date: 20181010
  Serious: Yes (Other)
  Sender: FDA-Public Use
  Company Number: US-BAYER-2018-058043

PATIENT
  Age: 38 Year
  Sex: Female
  Weight: 58.96 kg

DRUGS (3)
  1. MIRENA [Suspect]
     Active Substance: LEVONORGESTREL
     Indication: CONTRACEPTION
     Dosage: 20 MCG/24HR, CONT
     Route: 015
     Dates: start: 20170914, end: 20180330
  2. MIRENA [Suspect]
     Active Substance: LEVONORGESTREL
     Indication: CONTRACEPTION
     Dosage: 20 MCG/24HR, CONT
     Route: 015
     Dates: start: 20170829, end: 20170829
  3. CYTOTEC [Concomitant]
     Active Substance: MISOPROSTOL

REACTIONS (10)
  - Procedural pain [Recovered/Resolved]
  - Diarrhoea [Recovered/Resolved]
  - Complication of device insertion [Recovered/Resolved]
  - Uterine perforation [Recovered/Resolved]
  - Procedural haemorrhage [Recovered/Resolved]
  - Pelvic pain [Recovered/Resolved]
  - Device difficult to use [Recovered/Resolved]
  - Post procedural discomfort [Recovered/Resolved]
  - Uterine leiomyoma [Recovered/Resolved]
  - Infectious colitis [Recovered/Resolved]

NARRATIVE: CASE EVENT DATE: 20170829
